FAERS Safety Report 7531496-4 (Version None)
Quarter: 2011Q2

REPORT INFORMATION
  Report Type: 
  Country: None (occurrence: None)
  Receive Date: 20110601
  Receipt Date: 20110523
  Transmission Date: 20111010
  Serious: Yes (Disabling)
  Sender: FDA-Public Use
  Company Number: 930799

PATIENT
  Age: 43 Year
  Sex: Female

DRUGS (1)
  1. PHENYTOIN [Suspect]
     Indication: GRAND MAL CONVULSION
     Dosage: INTAVEOUS
     Route: 042

REACTIONS (16)
  - SUBARACHNOID HAEMORRHAGE [None]
  - MEMORY IMPAIRMENT [None]
  - APHASIA [None]
  - COGNITIVE DISORDER [None]
  - DRUG LEVEL INCREASED [None]
  - CNS VENTRICULITIS [None]
  - SOMNOLENCE [None]
  - HYDROCEPHALUS [None]
  - INFECTION [None]
  - FALL [None]
  - ACTIVITIES OF DAILY LIVING IMPAIRED [None]
  - MENINGITIS [None]
  - BRAIN ABSCESS [None]
  - DISORIENTATION [None]
  - ILLUSION [None]
  - INCONTINENCE [None]
